FAERS Safety Report 7914586-3 (Version None)
Quarter: 2011Q4

REPORT INFORMATION
  Report Type: 
  Country: None (occurrence: None)
  Receive Date: 20111115
  Receipt Date: 20111103
  Transmission Date: 20120403
  Serious: Yes (Hospitalization)
  Sender: FDA-Public Use
  Company Number: PHEH2011US08539

PATIENT
  Sex: Female

DRUGS (1)
  1. VALTURNA [Suspect]

REACTIONS (1)
  - ANEURYSM [None]
